FAERS Safety Report 16563498 (Version 1)
Quarter: 2019Q3

REPORT INFORMATION
  Report Type: Spontaneous
  Country: ES (occurrence: ES)
  Receive Date: 20190712
  Receipt Date: 20190712
  Transmission Date: 20191004
  Serious: Yes (Hospitalization, Other)
  Sender: FDA-Public Use
  Company Number: ES-AUROBINDO-AUR-APL-2019-039746

PATIENT

DRUGS (1)
  1. NAPROXEN SODIUM. [Suspect]
     Active Substance: NAPROXEN SODIUM
     Indication: OSTEOARTHRITIS
     Dosage: 1100 MILLIGRAM
     Route: 048
     Dates: start: 201601, end: 20170122

REACTIONS (2)
  - Gastric perforation [Recovered/Resolved with Sequelae]
  - Chemical peritonitis [Recovered/Resolved with Sequelae]

NARRATIVE: CASE EVENT DATE: 20170122
